FAERS Safety Report 25722879 (Version 2)
Quarter: 2025Q3

REPORT INFORMATION
  Report Type: Spontaneous
  Country: US (occurrence: US)
  Receive Date: 20250825
  Receipt Date: 20250905
  Transmission Date: 20251021
  Serious: Yes (Other)
  Sender: MYLAN
  Company Number: US-MYLANLABS-2025M1071277

PATIENT
  Sex: Female

DRUGS (2)
  1. LEVOTHYROXINE SODIUM [Suspect]
     Active Substance: LEVOTHYROXINE SODIUM
     Indication: Product used for unknown indication
  2. LEVOTHYROXINE [Suspect]
     Active Substance: LEVOTHYROXINE
     Indication: Product used for unknown indication

REACTIONS (13)
  - Metabolic disorder [Unknown]
  - Adverse reaction [Unknown]
  - Blood glucose increased [Unknown]
  - Lipids increased [Not Recovered/Not Resolved]
  - Cardiac disorder [Not Recovered/Not Resolved]
  - Blood thyroid stimulating hormone increased [Recovered/Resolved with Sequelae]
  - Pain [Unknown]
  - Weight increased [Recovered/Resolved]
  - Cognitive disorder [Not Recovered/Not Resolved]
  - Physical disability [Unknown]
  - Hypoglycaemia [Unknown]
  - Fatigue [Unknown]
  - Product substitution issue [Unknown]

NARRATIVE: CASE EVENT DATE: 20240423
